FAERS Safety Report 9184340 (Version 1)
Quarter: 2012Q4

REPORT INFORMATION
  Report Type: 
  Country: JP (occurrence: JP)
  Receive Date: 20121031
  Receipt Date: 20121031
  Transmission Date: 20130627
  Serious: Yes (Other)
  Sender: FDA-Public Use
  Company Number: JP-009507513-1210JPN012712

PATIENT
  Age: 82 Year
  Sex: Female

DRUGS (4)
  1. GASTER [Suspect]
     Dosage: 20 mg, qd
     Route: 048
     Dates: end: 2012
  2. CRAVIT [Suspect]
     Indication: NASOPHARYNGITIS
     Dosage: UNK
     Route: 048
     Dates: start: 2012, end: 2012
  3. LOXONIN [Concomitant]
  4. MYSLEE [Concomitant]

REACTIONS (1)
  - Renal impairment [Unknown]
